FAERS Safety Report 9655331 (Version 2)
Quarter: 2013Q4

REPORT INFORMATION
  Report Type: Spontaneous
  Country: US (occurrence: US)
  Receive Date: 20131029
  Receipt Date: 20131029
  Transmission Date: 20140711
  Serious: Yes (Other)
  Sender: FDA-Public Use
  Company Number: US-NAPPMUNDI-USA-2012-0083649

PATIENT
  Sex: Female

DRUGS (3)
  1. OXYCONTIN (NDA 22-272) [Suspect]
     Indication: DRUG ABUSE
     Dosage: 80 MG, SEE TEXT
  2. XANAX [Suspect]
     Indication: DRUG ABUSE
  3. HEROIN [Suspect]
     Indication: SUBSTANCE ABUSE

REACTIONS (3)
  - Accidental overdose [Recovered/Resolved]
  - Substance abuse [Unknown]
  - Loss of consciousness [Recovered/Resolved]
